FAERS Safety Report 5646489-1 (Version None)
Quarter: 2008Q1

REPORT INFORMATION
  Report Type: 
  Country: None (occurrence: None)
  Receive Date: 20080228
  Receipt Date: 20080228
  Transmission Date: 20080703
  Serious: Yes (Other)
  Sender: FDA-Public Use
  Company Number: None

PATIENT
  Age: 50 Year
  Sex: Female

DRUGS (5)
  1. ADRIAMYCIN [Suspect]
  2. CYTOXAN [Suspect]
  3. TAXOL [Suspect]
  4. TAMOXIFEN [Suspect]
  5. LETROZOLE [Suspect]

REACTIONS (2)
  - BREAST CANCER IN SITU [None]
  - METASTASIS [None]
